FAERS Safety Report 11525432 (Version 1)
Quarter: 2015Q3

REPORT INFORMATION
  Report Type: Spontaneous
  Country: US (occurrence: US)
  Receive Date: 20150918
  Receipt Date: 20150918
  Transmission Date: 20151125
  Serious: No
  Sender: FDA-Public Use
  Company Number: US-TARO-2015TAR00748

PATIENT
  Sex: Female

DRUGS (1)
  1. HALOBETASOL CREAM [Suspect]
     Active Substance: HALOBETASOL PROPIONATE

REACTIONS (1)
  - Multiple allergies [Unknown]
